FAERS Safety Report 6644272-1 (Version None)
Quarter: 2010Q1

REPORT INFORMATION
  Report Type: 
  Country: None (occurrence: None)
  Receive Date: 20100319
  Receipt Date: 20100319
  Transmission Date: 20100710
  Serious: No
  Sender: FDA-Public Use
  Company Number: None

PATIENT
  Age: 54 Year
  Sex: Male
  Weight: 136 kg

DRUGS (1)
  1. OPTIRAY 350 [Suspect]
     Dosage: 100 ML X1 IV
     Dates: start: 20100305

REACTIONS (4)
  - FEELING HOT [None]
  - PRURITUS [None]
  - RASH [None]
  - URTICARIA [None]
